FAERS Safety Report 7340419-2 (Version None)
Quarter: 2011Q1

REPORT INFORMATION
  Report Type: 
  Country: None (occurrence: None)
  Receive Date: 20110309
  Receipt Date: 20110225
  Transmission Date: 20110831
  Serious: Yes (Hospitalization, Other)
  Sender: FDA-Public Use
  Company Number: JP-AMGEN-JPNCT2010009877

PATIENT
  Age: 58 Year
  Sex: Female

DRUGS (16)
  1. GABAPEN [Concomitant]
     Dosage: UNK
     Route: 048
  2. MARCAINE [Concomitant]
     Route: 008
  3. FENTANYL CITRATE [Concomitant]
     Route: 062
  4. DOGMATYL [Concomitant]
     Route: 048
  5. PANITUMUMAB [Suspect]
     Dosage: 6 MG/KG, Q2WK
     Route: 041
     Dates: start: 20101015, end: 20101029
  6. MORPHINAN DERIVATIVES [Concomitant]
     Route: 042
  7. DUROTEP TAKEDA [Concomitant]
     Dosage: UNK
     Route: 062
  8. MAGMITT [Concomitant]
     Dosage: UNK
     Route: 048
  9. MUCOSTA [Concomitant]
     Dosage: UNK
     Route: 048
  10. PANITUMUMAB [Suspect]
     Dosage: 6 MG/KG, Q2WK
     Route: 041
     Dates: start: 20101207
  11. TAKEPRON [Concomitant]
     Dosage: UNK
     Route: 048
  12. HIRUDOID [Concomitant]
     Dosage: UNK
     Route: 062
  13. HYPEN [Concomitant]
     Dosage: UNK
     Route: 048
  14. ANTIHISTAMINES [Concomitant]
     Indication: PROPHYLAXIS
     Dosage: UNK
     Route: 065
  15. PANITUMUMAB [Suspect]
     Indication: COLORECTAL CANCER
     Dosage: 6 MG/KG, Q2WK
     Route: 041
     Dates: start: 20100723, end: 20100917
  16. OPSO [Concomitant]
     Dosage: UNK
     Route: 048

REACTIONS (2)
  - DERMATITIS ACNEIFORM [None]
  - BACK PAIN [None]
